FAERS Safety Report 25570843 (Version 1)
Quarter: 2025Q3

REPORT INFORMATION
  Report Type: Spontaneous
  Country: EU (occurrence: EU)
  Receive Date: 20250717
  Receipt Date: 20250717
  Transmission Date: 20251020
  Serious: Yes (Other)
  Sender: EXELA PHARMA SCIENCES
  Company Number: EU-EXELAPHARMA-2025EXLA00122

PATIENT
  Age: 37 Year
  Sex: Female

DRUGS (3)
  1. TRANEXAMIC ACID [Suspect]
     Active Substance: TRANEXAMIC ACID
     Indication: Hereditary angioedema
  2. IV plasma-derived C1 inhibitor (pdC1INH) [Concomitant]
     Route: 042
  3. SC plasma-derived C1 inhibitor (pdC1INH) [Concomitant]
     Route: 058

REACTIONS (2)
  - Therapeutic product effect incomplete [Unknown]
  - Product use in unapproved indication [Unknown]
